FAERS Safety Report 9039741 (Version 1)
Quarter: 2013Q1

REPORT INFORMATION
  Report Type: Report from Study
  Country: US (occurrence: US)
  Receive Date: 20130130
  Receipt Date: 20130130
  Transmission Date: 20140127
  Serious: No
  Sender: FDA-Public Use
  Company Number: US-ABBOTT-12P-163-0900018-00

PATIENT
  Age: 21 Year
  Sex: Female

DRUGS (15)
  1. HUMIRA 40 MG/ 0.8 ML PRE-FILLED SYRINGE [Suspect]
     Indication: CROHN^S DISEASE
     Dosage: LOADING DOSE
     Dates: start: 20120120, end: 20120120
  2. HUMIRA 40 MG/ 0.8 ML PRE-FILLED SYRINGE [Suspect]
  3. NASONEX [Concomitant]
     Indication: HYPERSENSITIVITY
     Dosage: 2 SPRAYS EACH NOSTRIL DAILY
  4. CETIRIZINE [Concomitant]
     Indication: HYPERSENSITIVITY
     Dosage: 1-10 MG TABLET DAILY
  5. AVIANE [Concomitant]
     Indication: CONTRACEPTION
     Dosage: DAILY
  6. STRATTERA [Concomitant]
     Indication: ATTENTION DEFICIT/HYPERACTIVITY DISORDER
     Dosage: 1- 25 MG CAPSULE DAILY
  7. CITALOPRAM [Concomitant]
     Indication: PANIC DISORDER
  8. CITALOPRAM [Concomitant]
     Indication: DEPRESSION
     Dates: start: 20120607
  9. CITALOPRAM [Concomitant]
     Indication: ANXIETY
  10. MULTIVITAMIN [Concomitant]
     Indication: VITAMIN SUPPLEMENTATION
     Dosage: 1 TAB DAILY
  11. LOPERAMIDE [Concomitant]
     Indication: DIARRHOEA
  12. LIDOCAINE [Concomitant]
     Indication: PAIN
     Dosage: 2% GEL AS NEEDED
     Route: 061
  13. MECLIZINE [Concomitant]
     Indication: VERTIGO
  14. MECLIZINE [Concomitant]
     Indication: HYPERSENSITIVITY
  15. ZYRTEC [Concomitant]
     Indication: SEASONAL ALLERGY

REACTIONS (12)
  - Injection site pain [Recovering/Resolving]
  - Injection site bruising [Unknown]
  - Nervousness [Unknown]
  - Anxiety [Unknown]
  - Injection site pain [Unknown]
  - Injection site erythema [Recovered/Resolved]
  - Depression [Recovered/Resolved]
  - Injection site haemorrhage [Unknown]
  - Anxiety [Recovered/Resolved]
  - Injection site warmth [Recovered/Resolved]
  - Injection site reaction [Recovered/Resolved]
  - Injection site reaction [Recovered/Resolved]
